FAERS Safety Report 7787635-3 (Version None)
Quarter: 2011Q3

REPORT INFORMATION
  Report Type: 
  Country: None (occurrence: None)
  Receive Date: 20110929
  Receipt Date: 20110808
  Transmission Date: 20111222
  Serious: Yes (Hospitalization)
  Sender: FDA-Public Use
  Company Number: PHHO2011IL13563

PATIENT
  Sex: Male

DRUGS (7)
  1. METFORMIN HCL [Suspect]
     Indication: DIABETES MELLITUS
     Dosage: 2550 MG, UNK
  2. LANTUS [Suspect]
     Indication: DIABETES MELLITUS
     Dosage: 18 IU, UNK
  3. ANGIOTENSIN CONVERTING ENZYME BLOCKERS [Concomitant]
  4. ATACAND [Suspect]
  5. REPAGLINIDE [Suspect]
     Indication: DIABETES MELLITUS
     Dosage: 6 MG, UNK
  6. ASPIRIN [Concomitant]
  7. LOPRESSOR [Suspect]

REACTIONS (1)
  - PRESYNCOPE [None]
